FAERS Safety Report 10930917 (Version 1)
Quarter: 2015Q1

REPORT INFORMATION
  Report Type: Spontaneous
  Country: US (occurrence: US)
  Receive Date: 20150319
  Receipt Date: 20150319
  Transmission Date: 20150721
  Serious: No
  Sender: FDA-Public Use
  Company Number: US-BAUSCH-SYM-2014-17268

PATIENT
  Sex: Female

DRUGS (2)
  1. TRETINOIN CREAM [Suspect]
     Active Substance: TRETINOIN
     Indication: THERAPEUTIC SKIN CARE TOPICAL
  2. TRETINOIN CREAM [Suspect]
     Active Substance: TRETINOIN
     Indication: ACNE
     Route: 061
     Dates: start: 201310

REACTIONS (2)
  - Skin exfoliation [Unknown]
  - Acne [Unknown]
